FAERS Safety Report 24155251 (Version 1)
Quarter: 2024Q3

REPORT INFORMATION
  Report Type: Report from Study
  Country: BE (occurrence: BE)
  Receive Date: 20240731
  Receipt Date: 20240731
  Transmission Date: 20241017
  Serious: Yes (Death, Hospitalization)
  Sender: ROCHE
  Company Number: BE-ROCHE-10000034043

PATIENT

DRUGS (6)
  1. OCRELIZUMAB [Interacting]
     Active Substance: OCRELIZUMAB
     Indication: Multiple sclerosis
     Route: 065
  2. RITUXIMAB [Interacting]
     Active Substance: RITUXIMAB
     Indication: Multiple sclerosis
     Route: 065
  3. MODERNA COVID-19 VACCINE [Interacting]
     Active Substance: ELASOMERAN
     Indication: COVID-19
     Route: 065
  4. PFIZER-BIONTECH COVID-19 VACCINE [Interacting]
     Active Substance: TOZINAMERAN
     Indication: COVID-19
     Route: 065
  5. ASTRAZENECA COVID-19 VACCINE [Interacting]
     Active Substance: AZD-1222
     Indication: COVID-19
     Route: 065
  6. JANSSEN COVID-19 VACCINE [Interacting]
     Active Substance: AD26.COV2.S
     Indication: COVID-19
     Route: 065

REACTIONS (3)
  - COVID-19 [Fatal]
  - Vaccination failure [Unknown]
  - Vaccine interaction [Unknown]
